FAERS Safety Report 13967026 (Version 1)
Quarter: 2017Q3

REPORT INFORMATION
  Report Type: Report from Study
  Country: None (occurrence: US)
  Receive Date: 20170914
  Receipt Date: 20170914
  Transmission Date: 20171128
  Serious: Yes (Other)
  Sender: FDA-Public Use
  Company Number: US-ABBVIE-17K-163-1877963-00

PATIENT
  Age: 45 Year
  Sex: Female

DRUGS (4)
  1. HUMIRA [Suspect]
     Active Substance: ADALIMUMAB
     Route: 058
     Dates: start: 201704
  2. HUMIRA [Suspect]
     Active Substance: ADALIMUMAB
     Route: 058
     Dates: start: 201612, end: 201704
  3. HUMIRA [Suspect]
     Active Substance: ADALIMUMAB
     Dosage: DAY 15- 2 PENS
     Route: 058
     Dates: start: 20161224, end: 20161224
  4. HUMIRA [Suspect]
     Active Substance: ADALIMUMAB
     Indication: COLITIS ULCERATIVE
     Dosage: DAY 1- 4 PENS
     Route: 058
     Dates: start: 20161210, end: 20161210

REACTIONS (27)
  - Ovarian mass [Recovered/Resolved]
  - Impaired work ability [Not Recovered/Not Resolved]
  - Hot flush [Unknown]
  - Headache [Not Recovered/Not Resolved]
  - Back pain [Unknown]
  - Skin lesion [Not Recovered/Not Resolved]
  - Stress [Not Recovered/Not Resolved]
  - Colitis ulcerative [Not Recovered/Not Resolved]
  - Fatigue [Not Recovered/Not Resolved]
  - Abdominal pain lower [Unknown]
  - Lymphadenectomy [Unknown]
  - Mucous stools [Not Recovered/Not Resolved]
  - Uterine disorder [Unknown]
  - Tonsillar hypertrophy [Unknown]
  - Insomnia [Not Recovered/Not Resolved]
  - Paraesthesia [Not Recovered/Not Resolved]
  - Injection site bruising [Not Recovered/Not Resolved]
  - Pyrexia [Unknown]
  - Diarrhoea [Unknown]
  - Frequent bowel movements [Not Recovered/Not Resolved]
  - Constipation [Unknown]
  - Feeling hot [Unknown]
  - Nausea [Not Recovered/Not Resolved]
  - Arthralgia [Not Recovered/Not Resolved]
  - Heart rate increased [Not Recovered/Not Resolved]
  - Rectal haemorrhage [Not Recovered/Not Resolved]
  - Abdominal pain [Not Recovered/Not Resolved]

NARRATIVE: CASE EVENT DATE: 2016
